FAERS Safety Report 19545962 (Version 1)
Quarter: 2021Q3

REPORT INFORMATION
  Report Type: Report from Study
  Country: DE (occurrence: DE)
  Receive Date: 20210714
  Receipt Date: 20210714
  Transmission Date: 20211014
  Serious: Yes (Other)
  Sender: FDA-Public Use
  Company Number: DE-TEVA-2021-DE-1931118

PATIENT
  Age: 40 Year
  Sex: Female

DRUGS (5)
  1. AJOVY [Suspect]
     Active Substance: FREMANEZUMAB-VFRM
     Indication: MIGRAINE PROPHYLAXIS
     Dosage: 225 MG ONCE PER MONTH, LAST DOSAGE PRIOR TO AE ONSET 02?APR?2021.
     Route: 058
     Dates: start: 20200302, end: 20210402
  2. SUMATRIPTAN 100 MG [Concomitant]
     Active Substance: SUMATRIPTAN
     Indication: MIGRAINE
     Route: 048
     Dates: start: 20120303
  3. PROMETHAZINE [Concomitant]
     Active Substance: PROMETHAZINE HYDROCHLORIDE
     Indication: DEPRESSION
     Dosage: 25 MILLIGRAM DAILY;
     Route: 048
     Dates: start: 2016
  4. NAPROXEN 500 MG [Concomitant]
     Active Substance: NAPROXEN
     Indication: MIGRAINE
     Dosage: 500 MILLIGRAM DAILY;
     Route: 048
     Dates: start: 20120305
  5. ESCITALOPRAM [Concomitant]
     Active Substance: ESCITALOPRAM OXALATE
     Indication: DEPRESSION
     Dosage: 15 MILLIGRAM DAILY;
     Route: 048
     Dates: start: 2016

REACTIONS (2)
  - Abortion spontaneous [Unknown]
  - Maternal exposure during pregnancy [Unknown]

NARRATIVE: CASE EVENT DATE: 202106
